FAERS Safety Report 14700976 (Version 1)
Quarter: 2018Q1

REPORT INFORMATION
  Report Type: Spontaneous
  Country: IT (occurrence: IT)
  Receive Date: 20180330
  Receipt Date: 20180330
  Transmission Date: 20180509
  Serious: Yes (Other)
  Sender: FDA-Public Use
  Company Number: IT-ALLERGAN-1816733US

PATIENT
  Sex: Male

DRUGS (1)
  1. FOSFOMYCIN TROMETHAMINE - BP [Suspect]
     Active Substance: FOSFOMYCIN TROMETHAMINE
     Indication: ANTIBIOTIC PROPHYLAXIS
     Dosage: 3 G, SINGLE
     Route: 065

REACTIONS (3)
  - Klebsiella test positive [Unknown]
  - Off label use [Unknown]
  - Pyrexia [Unknown]
